FAERS Safety Report 13510753 (Version 1)
Quarter: 2017Q2

REPORT INFORMATION
  Report Type: Spontaneous
  Country: US (occurrence: US)
  Receive Date: 20170503
  Receipt Date: 20170503
  Transmission Date: 20170830
  Serious: Yes (Other)
  Sender: FDA-Public Use
  Company Number: None

PATIENT
  Age: 86 Year
  Sex: Female
  Weight: 67.13 kg

DRUGS (2)
  1. ATENOLOL. [Concomitant]
     Active Substance: ATENOLOL
  2. CLONAZEPAM 0.5MGMS TEVA [Suspect]
     Active Substance: CLONAZEPAM
     Indication: INSOMNIA
     Route: 048
     Dates: start: 20170419, end: 20170419

REACTIONS (4)
  - Wrong technique in product usage process [None]
  - Panic reaction [None]
  - Agitation [None]
  - Muscle tightness [None]

NARRATIVE: CASE EVENT DATE: 20170419
